FAERS Safety Report 9713632 (Version 1)
Quarter: 2013Q4

REPORT INFORMATION
  Report Type: Spontaneous
  Country: US (occurrence: US)
  Receive Date: 20131126
  Receipt Date: 20131126
  Transmission Date: 20140711
  Serious: Yes (Hospitalization)
  Sender: FDA-Public Use
  Company Number: US-INCYTE CORPORATION-2013IN002775

PATIENT
  Age: 65 Year
  Sex: Female

DRUGS (10)
  1. JAKAFI [Suspect]
     Dosage: 10 MG, BID
     Route: 048
  2. FOLIC ACID [Concomitant]
  3. WARFARIN [Concomitant]
  4. MAGNESIUM [Concomitant]
  5. GABAPENTIN [Concomitant]
  6. DIGOXIN [Concomitant]
  7. DICYCLOMINE HCL [Concomitant]
  8. METFORMIN [Concomitant]
  9. VESICARE [Concomitant]
  10. VITAMIN D NOS [Concomitant]

REACTIONS (1)
  - Migraine [Unknown]
